FAERS Safety Report 5274620-9 (Version None)
Quarter: 2007Q1

REPORT INFORMATION
  Report Type: 
  Country: None (occurrence: None)
  Receive Date: 20070320
  Receipt Date: 20070305
  Transmission Date: 20070707
  Serious: Yes (Other)
  Sender: FDA-Public Use
  Company Number: PAR_1414_2007

PATIENT
  Age: 25 Year
  Sex: Male

DRUGS (16)
  1. IBUPROFEN [Suspect]
     Dosage: 800 MG
  2. IBUPROFEN [Suspect]
     Dosage: 800 MG PO
     Route: 048
  3. ACETAMINOPHEN [Suspect]
     Dosage: 1000 MG
  4. ASPIRIN [Suspect]
     Dosage: 325 MG PO
     Route: 048
  5. FLUTICASONE/SALMETEROL [Concomitant]
  6. MONTELUKAST SODIUM [Concomitant]
  7. FLUTICASONE NASAL SPRAY [Concomitant]
  8. PREDNISONE [Concomitant]
  9. BUDESONIDE [Concomitant]
  10. ALBUTEROL [Concomitant]
  11. SALMETEROL [Concomitant]
  12. RANITIDINE [Concomitant]
  13. TOPIRAMATE [Concomitant]
  14. VERAPAMIL [Concomitant]
  15. AMITRIPTYLINE HCL [Concomitant]
  16. RIZATRIPTAN BENZOATE [Concomitant]

REACTIONS (14)
  - ALLERGENIC DESENSITISATION PROCEDURE [None]
  - ASTHMA [None]
  - CONDITION AGGRAVATED [None]
  - DYSPNOEA [None]
  - FORCED EXPIRATORY VOLUME DECREASED [None]
  - LACRIMATION INCREASED [None]
  - NASAL CONGESTION [None]
  - NASAL POLYPS [None]
  - OCULAR HYPERAEMIA [None]
  - POSTNASAL DRIP [None]
  - RHINORRHOEA [None]
  - SINUSITIS [None]
  - SNEEZING [None]
  - WHEEZING [None]
